FAERS Safety Report 23720174 (Version 4)
Quarter: 2024Q2

REPORT INFORMATION
  Report Type: Spontaneous
  Country: GB (occurrence: GB)
  Receive Date: 20240408
  Receipt Date: 20240529
  Transmission Date: 20240716
  Serious: Yes (Death)
  Sender: FDA-Public Use
  Company Number: GB-GENMAB-2024-01136

PATIENT

DRUGS (5)
  1. EPCORITAMAB [Suspect]
     Active Substance: EPCORITAMAB
     Indication: Post transplant lymphoproliferative disorder
     Dosage: UNK
     Route: 058
     Dates: start: 20240229, end: 20240229
  2. EPCORITAMAB [Suspect]
     Active Substance: EPCORITAMAB
     Indication: Lymphoma
     Dosage: 0.8 MG
     Route: 058
     Dates: start: 20240307, end: 20240307
  3. EPCORITAMAB [Suspect]
     Active Substance: EPCORITAMAB
     Dosage: UNK
     Route: 058
     Dates: start: 20240327, end: 20240327
  4. EPCORITAMAB [Suspect]
     Active Substance: EPCORITAMAB
     Dosage: 0.16MG
     Route: 058
     Dates: start: 202403
  5. EPCORITAMAB [Suspect]
     Active Substance: EPCORITAMAB
     Dosage: 0.16 MILLIGRAM

REACTIONS (1)
  - Death [Fatal]

NARRATIVE: CASE EVENT DATE: 20240330
